FAERS Safety Report 8525427-8 (Version None)
Quarter: 2012Q3

REPORT INFORMATION
  Report Type: 
  Country: None (occurrence: None)
  Receive Date: 20120710
  Receipt Date: 20120626
  Transmission Date: 20120928
  Serious: Yes (Other)
  Sender: FDA-Public Use
  Company Number: B0812390A

PATIENT
  Age: 42 Year
  Sex: Female

DRUGS (4)
  1. RITONAVIR [Suspect]
     Indication: HIV INFECTION
     Dates: start: 20050301
  2. LEVOTHYROXINE SODIUM [Suspect]
     Indication: THYROID CYST
     Dates: start: 20061101
  3. NEVIRAPINE [Concomitant]
  4. FOSAMPRENAVIR CALCIUM [Suspect]
     Indication: HIV INFECTION
     Dates: start: 20050301

REACTIONS (4)
  - DRUG INEFFECTIVE [None]
  - HYPOTHYROIDISM [None]
  - THYROIDECTOMY [None]
  - DRUG INTERACTION [None]
